FAERS Safety Report 20500358 (Version 1)
Quarter: 2022Q1

REPORT INFORMATION
  Report Type: Spontaneous
  Country: US (occurrence: None)
  Receive Date: 20220219
  Receipt Date: 20220219
  Transmission Date: 20220423
  Serious: Yes (Death)
  Sender: FDA-Public Use
  Company Number: None

PATIENT
  Sex: Female
  Weight: 50.3 kg

DRUGS (4)
  1. ACALABRUTINIB [Suspect]
     Active Substance: ACALABRUTINIB
  2. BENDAMUSTINE [Suspect]
     Active Substance: BENDAMUSTINE
  3. CYTARABINE [Suspect]
     Active Substance: CYTARABINE
  4. RITUXIMAB [Suspect]
     Active Substance: RITUXIMAB

REACTIONS (12)
  - Pneumonia [None]
  - Enterovirus test positive [None]
  - Tachycardia [None]
  - Mental status changes [None]
  - Arthralgia [None]
  - Myocardial infarction [None]
  - Hypotension [None]
  - Cerebral haemorrhage [None]
  - Haemoglobin decreased [None]
  - Blood potassium decreased [None]
  - White blood cell count decreased [None]
  - Platelet count decreased [None]

NARRATIVE: CASE EVENT DATE: 20220205
